FAERS Safety Report 16615511 (Version 1)
Quarter: 2019Q3

REPORT INFORMATION
  Report Type: Spontaneous
  Country: US (occurrence: US)
  Receive Date: 20190610
  Receipt Date: 20190610
  Transmission Date: 20191004
  Serious: No
  Sender: FDA-Public Use
  Company Number: None

PATIENT
  Age: 77 Year
  Sex: Male

DRUGS (1)
  1. SPRYCEL [Suspect]
     Active Substance: DASATINIB
     Route: 048
     Dates: start: 201804

REACTIONS (4)
  - Abdominal pain upper [None]
  - Hypophagia [None]
  - Fluid intake reduced [None]
  - Diarrhoea [None]

NARRATIVE: CASE EVENT DATE: 20190610
